FAERS Safety Report 18018707 (Version 1)
Quarter: 2020Q3

REPORT INFORMATION
  Report Type: Spontaneous
  Country: US (occurrence: US)
  Receive Date: 20200713
  Receipt Date: 20200713
  Transmission Date: 20201103
  Serious: Yes (Life-Threatening, Hospitalization)
  Sender: FDA-Public Use
  Company Number: None

PATIENT
  Age: 47 Year
  Sex: Female
  Weight: 66.6 kg

DRUGS (12)
  1. PAROXETINE HCL [Concomitant]
     Active Substance: PAROXETINE HYDROCHLORIDE
  2. TIZANIDINE. [Concomitant]
     Active Substance: TIZANIDINE
  3. ADDERALL [Concomitant]
     Active Substance: AMPHETAMINE ASPARTATE\AMPHETAMINE SULFATE\DEXTROAMPHETAMINE SACCHARATE\DEXTROAMPHETAMINE SULFATE
  4. SYNTHROID [Concomitant]
     Active Substance: LEVOTHYROXINE SODIUM
  5. SAVELLA [Suspect]
     Active Substance: MILNACIPRAN HYDROCHLORIDE
     Indication: FIBROMYALGIA
     Dates: start: 20200416, end: 20200618
  6. DICLOFENAC SODIUM 75 MG [Concomitant]
     Active Substance: DICLOFENAC SODIUM
  7. OMEPRAZOLE. [Concomitant]
     Active Substance: OMEPRAZOLE
  8. CLONAZEPAM. [Concomitant]
     Active Substance: CLONAZEPAM
  9. LINZESS [Concomitant]
     Active Substance: LINACLOTIDE
  10. ACETAMINOPHEN?CODEINE [Concomitant]
     Active Substance: ACETAMINOPHEN\CODEINE PHOSPHATE
  11. VITAMIN D3 [Concomitant]
     Active Substance: CHOLECALCIFEROL
  12. CHLORDIAZEPOXIDE?CLIDINIUM [Concomitant]
     Active Substance: CHLORDIAZEPOXIDE\CLIDINIUM

REACTIONS (24)
  - Thyroid disorder [None]
  - Decreased appetite [None]
  - Hunger [None]
  - Blood glucose increased [None]
  - Night sweats [None]
  - Anxiety [None]
  - Myocardial infarction [None]
  - Constipation [None]
  - Feeling hot [None]
  - Nausea [None]
  - Insomnia [None]
  - Pain [None]
  - Eructation [None]
  - Abdominal distension [None]
  - Dry mouth [None]
  - Hot flush [None]
  - Feeling cold [None]
  - Vomiting [None]
  - Mood swings [None]
  - Abdominal pain upper [None]
  - Food craving [None]
  - Hypoglycaemia [None]
  - Thirst [None]
  - Haemorrhage [None]

NARRATIVE: CASE EVENT DATE: 20200424
